FAERS Safety Report 20200288 (Version 1)
Quarter: 2021Q4

REPORT INFORMATION
  Report Type: Spontaneous
  Country: US (occurrence: US)
  Receive Date: 20211217
  Receipt Date: 20211217
  Transmission Date: 20220303
  Serious: No
  Sender: FDA-Public Use
  Company Number: US-PERRIGO-21US006982

PATIENT
  Age: 85 Year
  Sex: Male
  Weight: 68.027 kg

DRUGS (11)
  1. MUPIROCIN [Suspect]
     Active Substance: MUPIROCIN
     Indication: Sinusitis
     Dosage: UNKNOWN, BID
     Route: 061
     Dates: start: 20210520, end: 20210525
  2. MUPIROCIN [Suspect]
     Active Substance: MUPIROCIN
     Indication: Nasal odour
  3. NASACORT [Concomitant]
     Active Substance: TRIAMCINOLONE ACETONIDE
     Indication: Eustachian tube obstruction
     Dosage: UNKNOWN, BID
     Route: 065
     Dates: start: 20210520
  4. SALINE                             /00075401/ [Concomitant]
     Indication: Eustachian tube obstruction
     Dosage: UNKNOWN, BID
     Route: 065
     Dates: start: 20210520
  5. CRESTOR [Concomitant]
     Active Substance: ROSUVASTATIN CALCIUM
     Indication: Blood cholesterol increased
     Dosage: UNK
     Route: 065
  6. ZETIA [Concomitant]
     Active Substance: EZETIMIBE
     Indication: Blood cholesterol increased
     Dosage: UNK
     Route: 065
  7. SOMA [Concomitant]
     Active Substance: CARISOPRODOL
     Indication: Muscle relaxant therapy
     Dosage: UNK
     Route: 065
  8. SOMA [Concomitant]
     Active Substance: CARISOPRODOL
     Indication: Nerve compression
  9. LYRICA [Concomitant]
     Active Substance: PREGABALIN
     Indication: Neuropathy peripheral
     Dosage: UNK
     Route: 065
  10. VITAMIN B12                        /00056201/ [Concomitant]
     Indication: Supplementation therapy
     Dosage: UNK
     Route: 065
  11. VITAMIN D3 [Concomitant]
     Active Substance: CHOLECALCIFEROL
     Indication: Supplementation therapy
     Dosage: UNK
     Route: 065

REACTIONS (3)
  - Application site pain [Not Recovered/Not Resolved]
  - Product administered at inappropriate site [Recovered/Resolved]
  - Off label use [Recovered/Resolved]

NARRATIVE: CASE EVENT DATE: 20210520
